FAERS Safety Report 24458376 (Version 1)
Quarter: 2024Q4

REPORT INFORMATION
  Report Type: Spontaneous
  Country: IR (occurrence: IR)
  Receive Date: 20241018
  Receipt Date: 20241018
  Transmission Date: 20250114
  Serious: No
  Sender: ROCHE
  Company Number: IR-ROCHE-3528433

PATIENT
  Age: 48 Year
  Sex: Female

DRUGS (2)
  1. RITUXIMAB [Suspect]
     Active Substance: RITUXIMAB
     Indication: Pemphigus
     Dosage: 2 WEEKS APART
     Route: 042
  2. PREDNISOLONE [Concomitant]
     Active Substance: PREDNISOLONE
     Indication: Pemphigus
     Dosage: WAS TAPERED GRADUALLY TO 10 MG/DAY AND THEN TAPERED TO 2.5 MG PER DAY.
     Route: 048

REACTIONS (1)
  - Psoriasis [Recovering/Resolving]
